FAERS Safety Report 5586882-9 (Version None)
Quarter: 2008Q1

REPORT INFORMATION
  Report Type: 
  Country: None (occurrence: None)
  Receive Date: 20080108
  Receipt Date: 20080108
  Transmission Date: 20080703
  Serious: Yes (Other)
  Sender: FDA-Public Use
  Company Number: None

PATIENT
  Sex: Male
  Weight: 68.0396 kg

DRUGS (1)
  1. FOSAMAX [Suspect]
     Indication: OSTEOPENIA
     Dosage: MONTHLY  PO   (DURATION: MAYBE 1 1/2 YEARS)
     Route: 048

REACTIONS (9)
  - BARIUM SWALLOW ABNORMAL [None]
  - CHOKING [None]
  - COUGH [None]
  - DIARRHOEA [None]
  - DYSPEPSIA [None]
  - DYSPHAGIA [None]
  - GASTROINTESTINAL PAIN [None]
  - MUSCULOSKELETAL CHEST PAIN [None]
  - ULCER [None]
